FAERS Safety Report 13449907 (Version 1)
Quarter: 2017Q2

REPORT INFORMATION
  Report Type: Spontaneous
  Country: US (occurrence: US)
  Receive Date: 20170417
  Receipt Date: 20170417
  Transmission Date: 20170830
  Serious: No
  Sender: FDA-Public Use
  Company Number: US-BION-20160249

PATIENT
  Age: 81 Year
  Sex: Female
  Weight: 61.24 kg

DRUGS (12)
  1. PREVACID [Concomitant]
     Active Substance: LANSOPRAZOLE
  2. VALIUM [Concomitant]
     Active Substance: DIAZEPAM
  3. ADVIL [Suspect]
     Active Substance: IBUPROFEN
     Route: 048
  4. METHENAMINE HIPPURATE (HIPREX) [Concomitant]
  5. CRESTOR [Concomitant]
     Active Substance: ROSUVASTATIN CALCIUM
  6. ASPIRIN. [Concomitant]
     Active Substance: ASPIRIN
  7. CIPRO [Concomitant]
     Active Substance: CIPROFLOXACIN HYDROCHLORIDE
  8. ALEVE [Suspect]
     Active Substance: NAPROXEN SODIUM
     Route: 048
     Dates: start: 2004
  9. ZYRTEC [Concomitant]
     Active Substance: CETIRIZINE HYDROCHLORIDE
  10. FLUCONAZOLE. [Concomitant]
     Active Substance: FLUCONAZOLE
  11. SYNTHROID [Concomitant]
     Active Substance: LEVOTHYROXINE SODIUM
  12. DOLAC [Concomitant]

REACTIONS (2)
  - Incorrect drug administration duration [Unknown]
  - Product physical issue [Unknown]
